FAERS Safety Report 5795380-9 (Version None)
Quarter: 2008Q2

REPORT INFORMATION
  Report Type: 
  Country: None (occurrence: None)
  Receive Date: 20080630
  Receipt Date: 20080623
  Transmission Date: 20081010
  Serious: Yes (Disabling)
  Sender: FDA-Public Use
  Company Number: US-PFIZER INC-2006056460

PATIENT
  Sex: Male
  Weight: 94.4 kg

DRUGS (10)
  1. SUTENT [Suspect]
     Indication: PROSTATE CANCER
     Route: 048
     Dates: start: 20060201, end: 20060418
  2. TAXOTERE [Suspect]
     Indication: PROSTATE CANCER
     Route: 042
  3. PREDNISONE [Suspect]
     Route: 048
     Dates: start: 20060315, end: 20060425
  4. ATENOLOL [Concomitant]
     Route: 048
  5. LISINOPRIL [Concomitant]
     Route: 048
  6. ESOMEPRAZOLE MAGNESIUM [Concomitant]
     Route: 048
  7. ONDANSETRON [Concomitant]
     Route: 048
  8. ASPIRIN [Concomitant]
     Route: 048
  9. ACTONEL [Concomitant]
     Route: 048
  10. DECADRON [Concomitant]
     Route: 048
     Dates: start: 20060314, end: 20060404

REACTIONS (1)
  - OPHTHALMOPLEGIA [None]
